FAERS Safety Report 5947827-2 (Version None)
Quarter: 2008Q4

REPORT INFORMATION
  Report Type: 
  Country: None (occurrence: None)
  Receive Date: 20081110
  Receipt Date: 20081110
  Transmission Date: 20090506
  Serious: No
  Sender: FDA-Public Use
  Company Number: None

PATIENT
  Age: 840 Month
  Sex: Female
  Weight: 65.7716 kg

DRUGS (1)
  1. METRONIDAZOLE [Suspect]
     Indication: DIVERTICULITIS
     Dosage: 1 3 TIMES A DAY PO
     Route: 048
     Dates: start: 20081103, end: 20081109

REACTIONS (3)
  - ABDOMINAL PAIN UPPER [None]
  - RASH GENERALISED [None]
  - RASH PRURITIC [None]
